FAERS Safety Report 23897507 (Version 2)
Quarter: 2024Q2

REPORT INFORMATION
  Report Type: Spontaneous
  Country: US (occurrence: US)
  Receive Date: 20240524
  Receipt Date: 20240528
  Transmission Date: 20240716
  Serious: Yes (Other)
  Sender: FDA-Public Use
  Company Number: US-PFIZER INC-202400174964

PATIENT
  Age: 74 Year
  Sex: Female

DRUGS (2)
  1. XELJANZ [Suspect]
     Active Substance: TOFACITINIB CITRATE
     Indication: Colitis
     Dosage: 10 MG TAKE 1 TABLET BY MOUTH TWICE A DAY
     Route: 048
     Dates: start: 202309
  2. XELJANZ [Suspect]
     Active Substance: TOFACITINIB CITRATE
     Indication: Arthritis

REACTIONS (6)
  - Hypergammaglobulinaemia benign monoclonal [Not Recovered/Not Resolved]
  - Syncope [Unknown]
  - Foot fracture [Unknown]
  - Pain [Unknown]
  - Drug ineffective for unapproved indication [Unknown]
  - Off label use [Unknown]
